FAERS Safety Report 6908521-4 (Version None)
Quarter: 2010Q3

REPORT INFORMATION
  Report Type: 
  Country: None (occurrence: None)
  Receive Date: 20100805
  Receipt Date: 20100723
  Transmission Date: 20110219
  Serious: Yes (Hospitalization)
  Sender: FDA-Public Use
  Company Number: US-ELI_LILLY_AND_COMPANY-US201007006463

PATIENT
  Age: 78 Year

DRUGS (2)
  1. CYMBALTA [Suspect]
     Dosage: 60 MG, DAILY (1/D)
  2. OPIOIDS [Concomitant]

REACTIONS (3)
  - DIZZINESS [None]
  - FALL [None]
  - HOSPITALISATION [None]
